FAERS Safety Report 8020940-4 (Version None)
Quarter: 2011Q4

REPORT INFORMATION
  Report Type: 
  Country: None (occurrence: None)
  Receive Date: 20111229
  Receipt Date: 20111229
  Transmission Date: 20120403
  Serious: No
  Sender: FDA-Public Use
  Company Number: None

PATIENT
  Age: 87 Year
  Sex: Female
  Weight: 52.1637 kg

DRUGS (1)
  1. AVELOX [Suspect]
     Indication: PNEUMONIA
     Dosage: ONE TABLET A DAY 7 DAYS BY MOUTH
     Dates: start: 20110425

REACTIONS (9)
  - ARTHRALGIA [None]
  - CONTUSION [None]
  - TENDON PAIN [None]
  - CHEST PAIN [None]
  - VASCULAR INJURY [None]
  - PARAESTHESIA [None]
  - MUSCLE SPASMS [None]
  - PAIN IN EXTREMITY [None]
  - GAIT DISTURBANCE [None]
